FAERS Safety Report 16071306 (Version 5)
Quarter: 2019Q3

REPORT INFORMATION
  Report Type: Spontaneous
  Country: US (occurrence: US)
  Receive Date: 20190314
  Receipt Date: 20190814
  Transmission Date: 20191004
  Serious: No
  Sender: FDA-Public Use
  Company Number: US-PFIZER INC-2019105158

PATIENT
  Age: 53 Year
  Sex: Female
  Weight: 79.38 kg

DRUGS (5)
  1. LYRICA [Suspect]
     Active Substance: PREGABALIN
     Indication: TREMOR
  2. BOTOX [Concomitant]
     Active Substance: ONABOTULINUMTOXINA
     Indication: EYELID FUNCTION DISORDER
  3. LYRICA [Suspect]
     Active Substance: PREGABALIN
     Indication: TORTICOLLIS
  4. BOTOX [Concomitant]
     Active Substance: ONABOTULINUMTOXINA
     Indication: TREMOR
     Dosage: UNK (EVERY 90 DAYS)
  5. LYRICA [Suspect]
     Active Substance: PREGABALIN
     Indication: DYSTONIA
     Dosage: 75 MG, 2X/DAY (MORNING AND NIGHT)
     Route: 048

REACTIONS (3)
  - Off label use [Unknown]
  - Drug effective for unapproved indication [Unknown]
  - Expired product administered [Unknown]
